FAERS Safety Report 10329332 (Version 1)
Quarter: 2014Q3

REPORT INFORMATION
  Report Type: Spontaneous
  Country: US (occurrence: US)
  Receive Date: 20140721
  Receipt Date: 20140721
  Transmission Date: 20150326
  Serious: No
  Sender: FDA-Public Use
  Company Number: US-ASTRAZENECA-2014SE50196

PATIENT
  Age: 623 Month
  Sex: Male
  Weight: 80.3 kg

DRUGS (2)
  1. NEXIUM [Suspect]
     Active Substance: ESOMEPRAZOLE MAGNESIUM
     Indication: GASTROOESOPHAGEAL REFLUX DISEASE
     Route: 048
     Dates: start: 2011, end: 201406
  2. ELMEROL [Concomitant]
     Indication: CYSTITIS
     Dosage: UNKNOWN DAILY
     Route: 048
     Dates: start: 2007

REACTIONS (2)
  - Drug dose omission [Unknown]
  - Tachycardia [Not Recovered/Not Resolved]

NARRATIVE: CASE EVENT DATE: 201406
